FAERS Safety Report 6367899-3 (Version None)
Quarter: 2009Q3

REPORT INFORMATION
  Report Type: 
  Country: None (occurrence: None)
  Receive Date: 20090922
  Receipt Date: 20070316
  Transmission Date: 20100115
  Serious: Yes (Other)
  Sender: FDA-Public Use
  Company Number: US-ASTRAZENECA-2006UW07044

PATIENT
  Age: 53 Year
  Sex: Male
  Weight: 99.8 kg

DRUGS (13)
  1. SEROQUEL [Suspect]
     Indication: BIPOLAR DISORDER
     Route: 048
     Dates: start: 20000211, end: 20051101
  2. SEROQUEL [Suspect]
     Indication: DEPRESSION
     Route: 048
     Dates: start: 20000211, end: 20051101
  3. SEROQUEL [Suspect]
     Indication: DEMENTIA
     Route: 048
     Dates: start: 20000211, end: 20051101
  4. SEROQUEL [Suspect]
     Dosage: 200-800 MG
     Route: 048
     Dates: start: 20021101, end: 20051101
  5. SEROQUEL [Suspect]
     Dosage: 200-800 MG
     Route: 048
     Dates: start: 20021101, end: 20051101
  6. SEROQUEL [Suspect]
     Dosage: 200-800 MG
     Route: 048
     Dates: start: 20021101, end: 20051101
  7. ZYPREXA [Suspect]
     Route: 048
     Dates: start: 20010530
  8. GEODON [Concomitant]
     Dates: start: 20060101
  9. EFFEXOR XR [Concomitant]
     Dates: start: 20060101
  10. ZOLOFT [Concomitant]
     Dosage: 20-100 MG
     Dates: start: 20000201
  11. VPA [Concomitant]
     Dosage: 250-500 MG
  12. REMERON [Concomitant]
     Route: 048
     Dates: start: 20010530
  13. DEPAKOTE [Concomitant]
     Route: 048
     Dates: start: 20010530

REACTIONS (5)
  - DIABETES MELLITUS [None]
  - DIABETIC NEUROPATHY [None]
  - HYPERGLYCAEMIA [None]
  - TYPE 2 DIABETES MELLITUS [None]
  - WEIGHT INCREASED [None]
